FAERS Safety Report 12634719 (Version 1)
Quarter: 2016Q3

REPORT INFORMATION
  Report Type: Spontaneous
  Country: US (occurrence: US)
  Receive Date: 20160808
  Receipt Date: 20160808
  Transmission Date: 20161109
  Serious: Yes (Other)
  Sender: FDA-Public Use
  Company Number: US-PFIZER INC-2016364510

PATIENT
  Age: 63 Year
  Sex: Female
  Weight: 67.58 kg

DRUGS (8)
  1. TIKOSYN [Suspect]
     Active Substance: DOFETILIDE
     Indication: ARRHYTHMIA
     Dosage: 250 UG, 2X/DAY
     Dates: start: 20140422
  2. DILTIAZEM. [Concomitant]
     Active Substance: DILTIAZEM
     Dosage: 350 MG, DAILY
  3. VITAMIN D [Concomitant]
     Active Substance: CHOLECALCIFEROL
     Dosage: UNK
  4. MAGNESIUM OXIDE. [Concomitant]
     Active Substance: MAGNESIUM OXIDE
     Dosage: 400 MG, 2X/DAY
  5. ATORVASTATIN [Concomitant]
     Active Substance: ATORVASTATIN
     Dosage: 20 MG, DAILY
  6. ZOLPIDEM [Concomitant]
     Active Substance: ZOLPIDEM\ZOLPIDEM TARTRATE
     Dosage: 10 MG, 1X/DAY (QHS)
  7. PROPRANOLOL [Concomitant]
     Active Substance: PROPRANOLOL\PROPRANOLOL HYDROCHLORIDE
     Dosage: 20 MG, 2X/DAY
  8. WARFARIN [Concomitant]
     Active Substance: WARFARIN
     Dosage: DAILY(AS DIRECTED)

REACTIONS (6)
  - Atrial fibrillation [Unknown]
  - Hypoaesthesia [Unknown]
  - Tachycardia [Unknown]
  - Asthenia [Unknown]
  - Supraventricular extrasystoles [Unknown]
  - Fatigue [Unknown]
